FAERS Safety Report 16358559 (Version 2)
Quarter: 2019Q2

REPORT INFORMATION
  Report Type: Spontaneous
  Country: CO (occurrence: CO)
  Receive Date: 20190527
  Receipt Date: 20190617
  Transmission Date: 20190711
  Serious: Yes (Death, Hospitalization, Other)
  Sender: FDA-Public Use
  Company Number: CO-009507513-1905COL009303

PATIENT
  Age: 46 Year
  Sex: Male
  Weight: 50 kg

DRUGS (1)
  1. RALTEGRAVIR POTASSIUM [Suspect]
     Active Substance: RALTEGRAVIR POTASSIUM
     Indication: PULMONARY TUBERCULOSIS
     Dosage: UNK
     Route: 048
     Dates: start: 20190207

REACTIONS (4)
  - Death [Fatal]
  - Product use in unapproved indication [Unknown]
  - Pulmonary tuberculosis [Unknown]
  - Hepatic failure [Unknown]

NARRATIVE: CASE EVENT DATE: 2019
